FAERS Safety Report 22986977 (Version 3)
Quarter: 2023Q4

REPORT INFORMATION
  Report Type: Spontaneous
  Country: US (occurrence: US)
  Receive Date: 20230926
  Receipt Date: 20231108
  Transmission Date: 20240109
  Serious: No
  Sender: FDA-Public Use
  Company Number: US-PFIZER INC-202300294456

PATIENT
  Age: 14 Year
  Sex: Female
  Weight: 44.45 kg

DRUGS (1)
  1. GENOTROPIN [Suspect]
     Active Substance: SOMATROPIN
     Indication: Growth hormone deficiency
     Dosage: 1.8 MG, DAILY (1.8 NIGHTLY AT BEDTIME)

REACTIONS (5)
  - Device use error [Unknown]
  - Device mechanical issue [Unknown]
  - Device information output issue [Unknown]
  - Device leakage [Unknown]
  - Drug dose omission by device [Unknown]

NARRATIVE: CASE EVENT DATE: 20230827
